FAERS Safety Report 4374425-7 (Version None)
Quarter: 2004Q2

REPORT INFORMATION
  Report Type: 
  Country: None (occurrence: None)
  Receive Date: 20040607
  Receipt Date: 20040607
  Transmission Date: 20050107
  Serious: Yes (Hospitalization)
  Sender: FDA-Public Use
  Company Number: None

PATIENT
  Age: 63 Year
  Sex: Female
  Weight: 69 kg

DRUGS (11)
  1. IRESSA [Suspect]
     Indication: LUNG NEOPLASM MALIGNANT
     Dosage: 250 MG QD PO
     Route: 048
     Dates: end: 20040504
  2. FASLODEX [Suspect]
     Indication: LUNG NEOPLASM MALIGNANT
     Dosage: 250 MG Q MONTH IM
     Route: 030
     Dates: end: 20040427
  3. CLOTRIMAZOLE [Concomitant]
  4. DEXAMETHASONE [Concomitant]
  5. VALIUM [Concomitant]
  6. RANITIDINE [Concomitant]
  7. IBUPROFEN [Concomitant]
  8. RITALIN [Concomitant]
  9. MS CONTIN [Concomitant]
  10. DOCUSATE [Concomitant]
  11. VICODIN [Concomitant]

REACTIONS (6)
  - ABNORMAL BEHAVIOUR [None]
  - ASTHENIA [None]
  - CENTRAL NERVOUS SYSTEM NEOPLASM [None]
  - CONFUSIONAL STATE [None]
  - FALL [None]
  - IMPAIRED SELF-CARE [None]
